FAERS Safety Report 4263282-5 (Version None)
Quarter: 2004Q1

REPORT INFORMATION
  Report Type: 
  Country: None (occurrence: None)
  Receive Date: 20040104
  Receipt Date: 20040104
  Transmission Date: 20041129
  Serious: Yes (Hospitalization)
  Sender: FDA-Public Use
  Company Number: None

PATIENT
  Sex: Female
  Weight: 57 kg

DRUGS (6)
  1. RITUXAN [Suspect]
     Indication: LYMPHOMA
     Dosage: 800 MG ONE TIME INTRAVENOUS
     Route: 042
     Dates: start: 20031229, end: 20031229
  2. RITUXAN [Suspect]
  3. CYCLOPHOSPHAMIDE [Concomitant]
  4. ETOPOSIDE [Concomitant]
  5. ONDANSETRON [Concomitant]
  6. DIPHENHYDRAMINE HCL [Concomitant]

REACTIONS (4)
  - BODY TEMPERATURE INCREASED [None]
  - CHILLS [None]
  - NAUSEA [None]
  - RASH PRURITIC [None]
